FAERS Safety Report 11239195 (Version 1)
Quarter: 2015Q3

REPORT INFORMATION
  Report Type: Spontaneous
  Country: GB (occurrence: GB)
  Receive Date: 20150706
  Receipt Date: 20150706
  Transmission Date: 20151125
  Serious: Yes (Other)
  Sender: FDA-Public Use
  Company Number: GB-SUN PHARMACEUTICAL INDUSTRIES LTD-2015RR-099781

PATIENT

DRUGS (1)
  1. ATORVASTATIN [Suspect]
     Active Substance: ATORVASTATIN
     Indication: BLOOD CHOLESTEROL INCREASED
     Dosage: 10 MG
     Route: 048
     Dates: start: 20141001, end: 20150228

REACTIONS (8)
  - Alopecia [Not Recovered/Not Resolved]
  - Visual impairment [Recovered/Resolved]
  - Constipation [Recovered/Resolved]
  - Abdominal pain [Recovered/Resolved]
  - Memory impairment [Recovered/Resolved]
  - Psoriasis [Not Recovered/Not Resolved]
  - Dry throat [Recovered/Resolved]
  - Joint swelling [Recovered/Resolved]
